FAERS Safety Report 7372315-9 (Version None)
Quarter: 2011Q1

REPORT INFORMATION
  Report Type: 
  Country: None (occurrence: None)
  Receive Date: 20110324
  Receipt Date: 20110318
  Transmission Date: 20110831
  Serious: Yes (Life-Threatening)
  Sender: FDA-Public Use
  Company Number: B0700433A

PATIENT
  Sex: Male
  Weight: 41 kg

DRUGS (17)
  1. ALKERAN [Suspect]
     Indication: STEM CELL TRANSPLANT
     Dosage: 104MGM2 PER DAY
     Route: 042
     Dates: start: 20090702, end: 20090702
  2. GRAN [Concomitant]
     Dates: start: 20090704, end: 20090714
  3. DECADRON [Concomitant]
     Indication: STEM CELL TRANSPLANT
     Dosage: 40MGM2 PER DAY
     Dates: start: 20090629, end: 20090702
  4. RITUXAN [Concomitant]
     Indication: STEM CELL TRANSPLANT
     Dosage: 375MGM2 PER DAY
     Route: 042
     Dates: start: 20090702, end: 20090702
  5. TAKEPRON [Concomitant]
     Dosage: 30MG PER DAY
     Route: 048
     Dates: start: 20090418
  6. VEPESID [Suspect]
     Indication: STEM CELL TRANSPLANT
     Dosage: 400MGM2 PER DAY
     Route: 042
     Dates: start: 20090629, end: 20090701
  7. ENDOXAN [Suspect]
     Indication: STEM CELL TRANSPLANT
     Dosage: 48MGM2 PER DAY
     Dates: start: 20090629, end: 20090630
  8. DIFLUCAN [Concomitant]
     Dosage: 400MG PER DAY
     Route: 048
     Dates: start: 20090629
  9. KYTRIL [Concomitant]
     Dosage: 3MG PER DAY
     Route: 042
     Dates: start: 20090629, end: 20090702
  10. BIKLIN [Concomitant]
     Dosage: 400MG PER DAY
     Dates: start: 20090709, end: 20090715
  11. FUNGUARD [Concomitant]
     Dosage: 150MG PER DAY
     Route: 042
     Dates: start: 20090709, end: 20090715
  12. VICCLOX [Concomitant]
     Dosage: 250MG PER DAY
     Route: 042
     Dates: start: 20090704, end: 20090713
  13. UROMITEXAN [Concomitant]
     Dosage: 2400MG PER DAY
     Route: 042
     Dates: start: 20090629, end: 20090630
  14. CRAVIT [Concomitant]
     Dosage: 300MG PER DAY
     Route: 048
     Dates: start: 20090629
  15. LENDORMIN [Concomitant]
     Dosage: .25MG PER DAY
     Route: 048
     Dates: start: 20090406
  16. OMEGACIN [Concomitant]
     Dosage: .9G PER DAY
     Route: 042
     Dates: start: 20090707, end: 20090709
  17. TIENAM [Concomitant]
     Dosage: 1.5G PER DAY
     Dates: start: 20090709, end: 20090715

REACTIONS (2)
  - GENERALISED OEDEMA [None]
  - FEBRILE NEUTROPENIA [None]
